FAERS Safety Report 10464954 (Version 2)
Quarter: 2014Q4

REPORT INFORMATION
  Report Type: Spontaneous
  Country: US (occurrence: US)
  Receive Date: 20140919
  Receipt Date: 20141021
  Transmission Date: 20150528
  Serious: Yes (Hospitalization, Other)
  Sender: FDA-Public Use
  Company Number: US-GLAXOSMITHKLINE-A1088860A

PATIENT
  Age: 54 Year
  Sex: Female

DRUGS (6)
  1. LAMICTAL [Suspect]
     Active Substance: LAMOTRIGINE
     Indication: BIPOLAR DISORDER
     Dosage: 150 MG, QD
     Route: 048
     Dates: start: 2006
  2. LACTULOSE. [Concomitant]
     Active Substance: LACTULOSE
  3. RADIATION [Suspect]
     Active Substance: RADIATION THERAPY
     Indication: UTERINE CANCER
     Dosage: UNKNOWN
  4. ALPRAZOLAM. [Concomitant]
     Active Substance: ALPRAZOLAM
  5. TRAMADOL [Concomitant]
     Active Substance: TRAMADOL
  6. TRAZODONE [Concomitant]
     Active Substance: TRAZODONE HYDROCHLORIDE

REACTIONS (9)
  - Enteritis [Unknown]
  - Vomiting [Unknown]
  - Adverse event [Unknown]
  - Hysterectomy [Unknown]
  - Knee operation [Unknown]
  - Transfusion [Unknown]
  - Investigation [Unknown]
  - Menstrual disorder [Unknown]
  - Uterine cancer [Recovered/Resolved with Sequelae]

NARRATIVE: CASE EVENT DATE: 20111011
